FAERS Safety Report 13085407 (Version 3)
Quarter: 2017Q3

REPORT INFORMATION
  Report Type: Spontaneous
  Country: KR (occurrence: KR)
  Receive Date: 20170104
  Receipt Date: 20170803
  Transmission Date: 20171127
  Serious: Yes (Other)
  Sender: FDA-Public Use
  Company Number: KR-009507513-1701KOR000938

PATIENT
  Age: 42 Year
  Sex: Female
  Weight: 54 kg

DRUGS (43)
  1. ALOXI [Concomitant]
     Active Substance: PALONOSETRON HYDROCHLORIDE
     Indication: PROPHYLAXIS OF NAUSEA AND VOMITING
     Dosage: 0.25 MG, ONCE
     Route: 042
     Dates: start: 20160906, end: 20160906
  2. ALOXI [Concomitant]
     Active Substance: PALONOSETRON HYDROCHLORIDE
     Indication: PREMEDICATION
     Dosage: 0.25 MG, ONCE
     Route: 042
     Dates: start: 20161006, end: 20161006
  3. H2 TAB [Concomitant]
     Dosage: 200 MG, TID
     Route: 048
     Dates: start: 20161007, end: 20161011
  4. BISCAN [Concomitant]
     Dosage: 500 MG, TID
     Route: 048
     Dates: start: 20161007, end: 20161016
  5. BISCAN [Concomitant]
     Dosage: 500 MG, TID
     Route: 048
     Dates: start: 20161130, end: 20161209
  6. EMEND (FOSAPREPITANT DIMEGLUMINE) [Suspect]
     Active Substance: FOSAPREPITANT DIMEGLUMINE
     Dosage: 150 MG, ONCE
     Route: 042
     Dates: start: 20161129, end: 20161129
  7. DEXAMETHASONE SODIUM PHOSPHATE. [Concomitant]
     Active Substance: DEXAMETHASONE SODIUM PHOSPHATE
     Dosage: 10 MG, ONCE, STRENGTH: 5 MG/ML
     Route: 042
     Dates: start: 20161129, end: 20161129
  8. DAGES CAP [Concomitant]
     Indication: PROPHYLAXIS
     Dosage: 1 CAPSULE, TID
     Route: 048
     Dates: start: 20160907, end: 20160911
  9. DAGES CAP [Concomitant]
     Dosage: 1 CAPSULE, TID
     Route: 048
     Dates: start: 20161007, end: 20161016
  10. ADRIAMYCIN [Concomitant]
     Active Substance: DOXORUBICIN HYDROCHLORIDE
     Dosage: 95 MG, ONCE,  CYCLE 3
     Route: 042
     Dates: start: 20161101, end: 20161101
  11. ADRIAMYCIN [Concomitant]
     Active Substance: DOXORUBICIN HYDROCHLORIDE
     Dosage: 95 MG, ONCE,  CYCLE 4
     Route: 042
     Dates: start: 20161129, end: 20161129
  12. ENDOXAN [Concomitant]
     Active Substance: CYCLOPHOSPHAMIDE
     Indication: ADJUVANT THERAPY
     Dosage: 950 MG, ONCE,  CYCLE 1
     Route: 042
     Dates: start: 20160906, end: 20160906
  13. CEPHAMETHYL [Concomitant]
     Indication: POSTOPERATIVE WOUND INFECTION
     Dosage: 1000 MG, TID
     Route: 048
     Dates: start: 20160829, end: 20160904
  14. MACPERAN [Concomitant]
     Active Substance: METOCLOPRAMIDE HYDROCHLORIDE
     Indication: PROPHYLAXIS OF NAUSEA AND VOMITING
     Dosage: 5 MG, TID
     Route: 048
     Dates: start: 20160907, end: 20160911
  15. DAGES CAP [Concomitant]
     Dosage: 1 CAPSULE, TID
     Route: 048
     Dates: start: 20161130, end: 20161204
  16. EMEND (FOSAPREPITANT DIMEGLUMINE) [Suspect]
     Active Substance: FOSAPREPITANT DIMEGLUMINE
     Indication: PROPHYLAXIS OF NAUSEA AND VOMITING
     Dosage: 150 MG, ONCE
     Route: 042
     Dates: start: 20160906, end: 20160906
  17. EMEND (FOSAPREPITANT DIMEGLUMINE) [Suspect]
     Active Substance: FOSAPREPITANT DIMEGLUMINE
     Dosage: 150 MG, ONCE
     Route: 042
     Dates: start: 20161101, end: 20161101
  18. ENDOXAN [Concomitant]
     Active Substance: CYCLOPHOSPHAMIDE
     Dosage: 950 MG, ONCE, CYCLE 4
     Route: 042
     Dates: start: 20161129, end: 20161129
  19. DEXAMETHASONE SODIUM PHOSPHATE. [Concomitant]
     Active Substance: DEXAMETHASONE SODIUM PHOSPHATE
     Indication: PROPHYLAXIS OF NAUSEA AND VOMITING
     Dosage: 10 MG, ONCE, STRENGTH: 5 MG/ML
     Route: 042
     Dates: start: 20160906, end: 20160906
  20. DEXAMETHASONE SODIUM PHOSPHATE. [Concomitant]
     Active Substance: DEXAMETHASONE SODIUM PHOSPHATE
     Indication: PREMEDICATION
     Dosage: 10 MG, ONCE, STRENGTH: 5 MG/ML
     Route: 042
     Dates: start: 20161006, end: 20161006
  21. DEXAMETHASONE SODIUM PHOSPHATE. [Concomitant]
     Active Substance: DEXAMETHASONE SODIUM PHOSPHATE
     Dosage: 10 MG, ONCE, STRENGTH: 5 MG/ML
     Route: 042
     Dates: start: 20161101, end: 20161101
  22. BISCAN [Concomitant]
     Indication: PROPHYLAXIS
     Dosage: 500 MG, TID
     Route: 048
     Dates: start: 20160907, end: 20160916
  23. ENDOXAN [Concomitant]
     Active Substance: CYCLOPHOSPHAMIDE
     Dosage: 950 MG, ONCE, CYCLE 2
     Route: 042
     Dates: start: 20161006, end: 20161006
  24. DEXAMETHASONE. [Concomitant]
     Active Substance: DEXAMETHASONE
     Dosage: 8 MG, QD
     Route: 048
     Dates: start: 20161130, end: 20161202
  25. ALOXI [Concomitant]
     Active Substance: PALONOSETRON HYDROCHLORIDE
     Dosage: 0.25 MG, ONCE
     Route: 042
     Dates: start: 20161129, end: 20161129
  26. H2 TAB [Concomitant]
     Dosage: 200 MG, TID
     Route: 048
     Dates: start: 20161102, end: 20161106
  27. MACPERAN [Concomitant]
     Active Substance: METOCLOPRAMIDE HYDROCHLORIDE
     Dosage: 5 MG, TID
     Route: 048
     Dates: start: 20161130, end: 20161204
  28. ADRIAMYCIN [Concomitant]
     Active Substance: DOXORUBICIN HYDROCHLORIDE
     Indication: ADJUVANT THERAPY
     Dosage: 95 MG, ONCE,  CYCLE 1
     Route: 042
     Dates: start: 20160906, end: 20160906
  29. ADRIAMYCIN [Concomitant]
     Active Substance: DOXORUBICIN HYDROCHLORIDE
     Dosage: 95 MG, ONCE,  CYCLE 2
     Route: 042
     Dates: start: 20161006, end: 20161006
  30. DEXAMETHASONE. [Concomitant]
     Active Substance: DEXAMETHASONE
     Dosage: 8 MG, QD
     Route: 048
     Dates: start: 20161007, end: 20161009
  31. ALOXI [Concomitant]
     Active Substance: PALONOSETRON HYDROCHLORIDE
     Dosage: 0.25 MG, ONCE
     Route: 042
     Dates: start: 20161101, end: 20161101
  32. H2 TAB [Concomitant]
     Dosage: 200 MG, TID
     Route: 048
     Dates: start: 20161130, end: 20161204
  33. BISCAN [Concomitant]
     Dosage: 500 MG, TID
     Route: 048
     Dates: start: 20161102, end: 20161111
  34. H2 TAB [Concomitant]
     Indication: PROPHYLAXIS
     Dosage: 200 MG, TID
     Route: 048
     Dates: start: 20160829, end: 20160904
  35. MACPERAN [Concomitant]
     Active Substance: METOCLOPRAMIDE HYDROCHLORIDE
     Dosage: 5 MG, TID
     Route: 048
     Dates: start: 20161007, end: 20161011
  36. DAGES CAP [Concomitant]
     Dosage: 1 CAPSULE, TID
     Route: 048
     Dates: start: 20161102, end: 20161106
  37. TACENOL [Concomitant]
     Indication: PAIN PROPHYLAXIS
     Dosage: 650 MG, TID
     Route: 048
     Dates: start: 20160907, end: 20161219
  38. EMEND (FOSAPREPITANT DIMEGLUMINE) [Suspect]
     Active Substance: FOSAPREPITANT DIMEGLUMINE
     Dosage: 150 MG, ONCE
     Route: 042
     Dates: start: 20161006, end: 20161006
  39. ENDOXAN [Concomitant]
     Active Substance: CYCLOPHOSPHAMIDE
     Dosage: 950 MG, ONCE, CYCLE 3
     Route: 042
     Dates: start: 20161101, end: 20161101
  40. DEXAMETHASONE. [Concomitant]
     Active Substance: DEXAMETHASONE
     Indication: PROPHYLAXIS OF NAUSEA AND VOMITING
     Dosage: 8 MG, QD
     Route: 048
     Dates: start: 20160907, end: 20160909
  41. DEXAMETHASONE. [Concomitant]
     Active Substance: DEXAMETHASONE
     Dosage: 8 MG, QD
     Route: 048
     Dates: start: 20161102, end: 20161104
  42. H2 TAB [Concomitant]
     Dosage: 200 MG, TID
     Route: 048
     Dates: start: 20160907, end: 20160911
  43. MACPERAN [Concomitant]
     Active Substance: METOCLOPRAMIDE HYDROCHLORIDE
     Dosage: 5 MG, TID
     Route: 048
     Dates: start: 20161102, end: 20161106

REACTIONS (5)
  - Neutrophil count decreased [Recovered/Resolved]
  - Neutrophil count decreased [Recovered/Resolved]
  - Tooth abscess [Recovered/Resolved]
  - Neutrophil count decreased [Recovered/Resolved]
  - Insomnia [Recovered/Resolved]

NARRATIVE: CASE EVENT DATE: 20160915
